FAERS Safety Report 8506261-1 (Version None)
Quarter: 2012Q3

REPORT INFORMATION
  Report Type: 
  Country: None (occurrence: None)
  Receive Date: 20120712
  Receipt Date: 20120709
  Transmission Date: 20120928
  Serious: Yes (Death, Hospitalization, Other)
  Sender: FDA-Public Use
  Company Number: US-009507513-2011SP034315

PATIENT

DRUGS (2)
  1. CONCERTA [Concomitant]
     Indication: ATTENTION DEFICIT/HYPERACTIVITY DISORDER
     Dosage: 36 MG, QD
     Route: 048
  2. NUVARING [Suspect]
     Indication: CONTRACEPTION
     Dosage: UNK UNK, QM
     Route: 067
     Dates: start: 20070901, end: 20090719

REACTIONS (5)
  - BASAL CELL CARCINOMA [None]
  - PULMONARY EMBOLISM [None]
  - OVARIAN CYST [None]
  - HYPERCOAGULATION [None]
  - LUNG NEOPLASM [None]
